FAERS Safety Report 15849066 (Version 1)
Quarter: 2019Q1

REPORT INFORMATION
  Report Type: Other
  Country: FR (occurrence: FR)
  Receive Date: 20190121
  Receipt Date: 20190121
  Transmission Date: 20190417
  Serious: Yes (Hospitalization)
  Sender: FDA-Public Use
  Company Number: FR-EMCURE PHARMS-2018HTG00328

PATIENT
  Age: 66 Year
  Sex: Female
  Weight: 45 kg

DRUGS (4)
  1. CYTARABINE EG [Suspect]
     Active Substance: CYTARABINE
     Indication: HIGH GRADE B-CELL LYMPHOMA BURKITT-LIKE LYMPHOMA
     Dosage: 576 MG, 1X/DAY
     Route: 042
     Dates: start: 20160825, end: 20160828
  2. ALKERAN [Suspect]
     Active Substance: MELPHALAN
     Indication: HIGH GRADE B-CELL LYMPHOMA BURKITT-LIKE LYMPHOMA
     Dosage: 201.6 MG, 1X/DAY
     Route: 042
     Dates: start: 20160829, end: 20160829
  3. ETOPOSIDE (TEVA) [Suspect]
     Active Substance: ETOPOSIDE
     Indication: HIGH GRADE B-CELL LYMPHOMA BURKITT-LIKE LYMPHOMA
     Dosage: 576 MG, 1X/DAY
     Route: 042
     Dates: start: 20160825, end: 20160828
  4. BICNU [Suspect]
     Active Substance: CARMUSTINE
     Indication: HIGH GRADE B-CELL LYMPHOMA BURKITT-LIKE LYMPHOMA
     Dosage: 432 MG, 1X/DAY
     Route: 042
     Dates: start: 20160824, end: 20160824

REACTIONS (5)
  - Febrile neutropenia [Recovered/Resolved]
  - Mucosal inflammation [Recovered/Resolved]
  - Diarrhoea [Recovered/Resolved]
  - Vomiting [Recovered/Resolved]
  - Aplasia [Recovered/Resolved]

NARRATIVE: CASE EVENT DATE: 20160831
